FAERS Safety Report 15103637 (Version 1)
Quarter: 2018Q3

REPORT INFORMATION
  Report Type: Spontaneous
  Country: JP (occurrence: JP)
  Receive Date: 20180703
  Receipt Date: 20180703
  Transmission Date: 20181010
  Serious: Yes (Death)
  Sender: FDA-Public Use
  Company Number: JP-JNJFOC-20180613365

PATIENT
  Age: 68 Year
  Sex: Female

DRUGS (1)
  1. DUROTEP MT [Suspect]
     Active Substance: FENTANYL
     Indication: CANCER PAIN
     Route: 062
     Dates: start: 20180607, end: 20180608

REACTIONS (4)
  - Inadequate analgesia [Unknown]
  - Therapy naive [Unknown]
  - Hepatic cirrhosis [Fatal]
  - Off label use [Unknown]

NARRATIVE: CASE EVENT DATE: 20180607
